FAERS Safety Report 16517260 (Version 2)
Quarter: 2019Q3

REPORT INFORMATION
  Report Type: Spontaneous
  Country: FR (occurrence: FR)
  Receive Date: 20190702
  Receipt Date: 20190722
  Transmission Date: 20191004
  Serious: Yes (Other)
  Sender: FDA-Public Use
  Company Number: FR-MYLANLABS-2019M1060663

PATIENT
  Age: 51 Year
  Sex: Female

DRUGS (2)
  1. ADEPAL [Concomitant]
     Active Substance: ETHINYL ESTRADIOL\LEVONORGESTREL
     Dosage: UNK
  2. HYDROCHLOROTHIAZIDE,IRBESARTAN MYLAN [Suspect]
     Active Substance: HYDROCHLOROTHIAZIDE\IRBESARTAN
     Indication: HYPERTENSION
     Dosage: 1 DOSAGE FORM, QD
     Route: 048
     Dates: start: 201810, end: 20190103

REACTIONS (5)
  - Dyspnoea [Recovered/Resolved]
  - Tinnitus [Recovered/Resolved]
  - Abdominal pain [Recovered/Resolved]
  - Vertigo [Recovering/Resolving]
  - Liver injury [Recovered/Resolved]

NARRATIVE: CASE EVENT DATE: 20181225
